FAERS Safety Report 8170495-9 (Version None)
Quarter: 2012Q1

REPORT INFORMATION
  Report Type: 
  Country: None (occurrence: None)
  Receive Date: 20120228
  Receipt Date: 20120214
  Transmission Date: 20120608
  Serious: Yes (Hospitalization, Other)
  Sender: FDA-Public Use
  Company Number: JP-ELI_LILLY_AND_COMPANY-JP201201008201

PATIENT
  Sex: Female
  Weight: 95.3 kg

DRUGS (1)
  1. ZYPREXA [Suspect]
     Indication: SCHIZOPHRENIA
     Dosage: 2.5 MG, UNK
     Route: 048
     Dates: start: 20111217, end: 20111227

REACTIONS (6)
  - ATRIAL FIBRILLATION [None]
  - EXTRAPYRAMIDAL DISORDER [None]
  - AUTONOMIC NERVOUS SYSTEM IMBALANCE [None]
  - CARDIAC FAILURE CHRONIC [None]
  - ABDOMINAL PAIN [None]
  - DECREASED APPETITE [None]
